FAERS Safety Report 9674672 (Version 2)
Quarter: 2013Q4

REPORT INFORMATION
  Report Type: Report from Study
  Country: DE (occurrence: DE)
  Receive Date: 20131107
  Receipt Date: 20131119
  Transmission Date: 20140711
  Serious: Yes (Other)
  Sender: FDA-Public Use
  Company Number: DE-ROCHE-1296389

PATIENT
  Age: 84 Year
  Sex: Female
  Weight: 68 kg

DRUGS (3)
  1. BEVACIZUMAB [Suspect]
     Indication: COLORECTAL CANCER METASTATIC
     Route: 042
     Dates: start: 20130617, end: 20131004
  2. XELODA [Suspect]
     Indication: COLORECTAL CANCER METASTATIC
     Dosage: FROM D1 TO D14 OF EACH 3 WEEKLY CYCLE
     Route: 048
     Dates: start: 20130617
  3. PANTOPRAZOL [Concomitant]
     Indication: PROPHYLAXIS AGAINST GASTROINTESTINAL ULCER
     Route: 048
     Dates: start: 20130429

REACTIONS (2)
  - Transient ischaemic attack [Recovered/Resolved]
  - Hypertension [Unknown]
